FAERS Safety Report 6875592-3 (Version None)
Quarter: 2010Q3

REPORT INFORMATION
  Report Type: 
  Country: None (occurrence: None)
  Receive Date: 20100727
  Receipt Date: 20100717
  Transmission Date: 20110219
  Serious: Yes (Other)
  Sender: FDA-Public Use
  Company Number: FR-JNJFOC-20100705588

PATIENT
  Age: 6 Month
  Sex: Female

DRUGS (17)
  1. LEUSTAT [Suspect]
     Indication: LANGERHANS' CELL HISTIOCYTOSIS
     Route: 042
  2. LEUSTAT [Suspect]
     Route: 042
  3. LEUSTAT [Suspect]
     Route: 042
  4. LEUSTAT [Suspect]
     Route: 042
  5. CYTARABINE [Suspect]
     Indication: LANGERHANS' CELL HISTIOCYTOSIS
     Route: 042
  6. CYTARABINE [Suspect]
     Route: 042
  7. CYTARABINE [Suspect]
     Route: 042
  8. CYTARABINE [Suspect]
     Route: 042
  9. VINBLASTINE SULFATE [Suspect]
     Indication: LANGERHANS' CELL HISTIOCYTOSIS
     Route: 065
  10. VINBLASTINE SULFATE [Suspect]
     Route: 065
  11. VINBLASTINE SULFATE [Suspect]
     Route: 065
  12. CORTICOSTEROID [Suspect]
     Indication: LANGERHANS' CELL HISTIOCYTOSIS
     Route: 065
  13. CORTICOSTEROID [Suspect]
     Route: 065
  14. VEPESID [Suspect]
     Indication: LANGERHANS' CELL HISTIOCYTOSIS
     Route: 065
  15. NEUPOGEN [Concomitant]
  16. SULFAMETHOXAZOLE AND TRIMETHOPRIM [Concomitant]
     Indication: ANTIFUNGAL PROPHYLAXIS
  17. ANTIEMETICS [Concomitant]

REACTIONS (5)
  - CONVULSION [None]
  - DRUG EFFECT DECREASED [None]
  - IDIOPATHIC THROMBOCYTOPENIC PURPURA [None]
  - NEUTROPENIA [None]
  - PYREXIA [None]
